FAERS Safety Report 8216712-8 (Version None)
Quarter: 2012Q1

REPORT INFORMATION
  Report Type: 
  Country: None (occurrence: None)
  Receive Date: 20120316
  Receipt Date: 20120312
  Transmission Date: 20120608
  Serious: Yes (Hospitalization, Other)
  Sender: FDA-Public Use
  Company Number: GB-ROCHE-1045002

PATIENT
  Sex: Male

DRUGS (5)
  1. CHLORPHENIRAMINE MALEATE [Concomitant]
     Dosage: ONE AT NIGHT TIME.
     Route: 048
  2. RIBAVIRIN [Suspect]
     Indication: HEPATITIS C
     Dates: start: 20110713
  3. IMIPRAMINE [Concomitant]
     Route: 048
  4. INTERFERON ALFA [Suspect]
     Indication: HEPATITIS C
     Route: 058
     Dates: start: 20110713
  5. OMEPRAZOLE [Concomitant]

REACTIONS (3)
  - BLOOD URIC ACID INCREASED [None]
  - NEPHROLITHIASIS [None]
  - URINE ANALYSIS ABNORMAL [None]
